FAERS Safety Report 19408574 (Version 1)
Quarter: 2021Q2

REPORT INFORMATION
  Report Type: Spontaneous
  Country: DE (occurrence: DE)
  Receive Date: 20210612
  Receipt Date: 20210612
  Transmission Date: 20210717
  Serious: Yes (Hospitalization)
  Sender: FDA-Public Use
  Company Number: DE-TEVA-2021-DE-1920763

PATIENT
  Age: 79 Year
  Sex: Female

DRUGS (8)
  1. VENLAFAXIN [Suspect]
     Active Substance: VENLAFAXINE HYDROCHLORIDE
     Dosage: 75 MILLIGRAM DAILY; 1?0?0?0
     Route: 048
  2. DONEPEZIL. [Suspect]
     Active Substance: DONEPEZIL
     Dosage: 10 MILLIGRAM DAILY;  0?0?1?0
     Route: 048
  3. BRIMICA GENUAIR 340MIKROGRAMM/12MIKROGRAMM [Concomitant]
     Dosage: 2 DOSAGE FORMS DAILY; 40 | 12 UG, 1?0?1?0
     Route: 055
  4. AMLODIPIN [Concomitant]
     Active Substance: AMLODIPINE BESYLATE
     Dosage: 5 MILLIGRAM DAILY; 1?0?0?0
     Route: 048
  5. BUDESONIDE W/FORMOTEROL [Concomitant]
     Active Substance: BUDESONIDE\FORMOTEROL
     Dosage: 2 DOSAGE FORMS DAILY; 200 | 6 UG, 1?0?1?0
     Route: 055
  6. LOSARTAN100?1A PHARMA [Concomitant]
     Dosage: 100 MILLIGRAM DAILY; 1?0?0?0
     Route: 048
  7. ACETYLSALICYLSAEURE [Suspect]
     Active Substance: ASPIRIN
     Dosage: 100 MILLIGRAM DAILY; 0?0?1?0
     Route: 048
  8. TORASEMID [Concomitant]
     Active Substance: TORSEMIDE
     Dosage: 2.5 MILLIGRAM DAILY; 1?0?0?0
     Route: 048

REACTIONS (6)
  - Haematochezia [Unknown]
  - Diarrhoea [Unknown]
  - Constipation [Unknown]
  - Abdominal pain lower [Unknown]
  - Flatulence [Unknown]
  - Nausea [Unknown]
